FAERS Safety Report 4269798-X (Version None)
Quarter: 2004Q1

REPORT INFORMATION
  Report Type: 
  Country: None (occurrence: None)
  Receive Date: 20040113
  Receipt Date: 20000722
  Transmission Date: 20041129
  Serious: No
  Sender: FDA-Public Use
  Company Number: 6985

PATIENT
  Age: 60 Year
  Sex: Female

DRUGS (4)
  1. CARBOPLATIN [Suspect]
     Dosage: 500 MG PER_CYCLE IV
     Route: 042
     Dates: start: 19990511, end: 19990906
  2. PACLITAXEL [Suspect]
     Dosage: 252 MG PER_CYCLE IV
     Route: 042
     Dates: start: 19990511, end: 19990906
  3. TAMOFEN [Concomitant]
  4. SPIRONOLACTONE [Concomitant]

REACTIONS (2)
  - INTESTINAL OBSTRUCTION [None]
  - PLEURAL EFFUSION [None]
